FAERS Safety Report 4743058-2 (Version None)
Quarter: 2005Q3

REPORT INFORMATION
  Report Type: 
  Country: None (occurrence: None)
  Receive Date: 20050811
  Receipt Date: 20050728
  Transmission Date: 20060218
  Serious: Yes (Life-Threatening, Hospitalization)
  Sender: FDA-Public Use
  Company Number: 216286

PATIENT
  Age: 71 Year
  Sex: Female
  Weight: 47.1 kg

DRUGS (8)
  1. BEVACIZUMAB (BEVACIZUMAB) PWDR + SOLVENT, INFUSION SOLN, 100 MG [Suspect]
     Indication: OVARIAN CANCER
     Dosage: 15 MG/KG, Q3W, INTRAVENOUS
     Route: 042
     Dates: start: 20050530, end: 20050714
  2. REGLAN [Concomitant]
  3. ZOFRAN [Concomitant]
  4. COZAAR [Concomitant]
  5. MULTI-VITAMINS [Concomitant]
  6. ASPIRIN [Concomitant]
  7. SPIRIVA [Concomitant]
  8. ALBUTEROL (ALBUTEROL, ALBUTEROL SULFATE) [Concomitant]

REACTIONS (18)
  - ABDOMINAL PAIN [None]
  - ABSCESS INTESTINAL [None]
  - ASCITES [None]
  - BLOOD ALBUMIN DECREASED [None]
  - CHILLS [None]
  - DRUG INEFFECTIVE [None]
  - GASTROINTESTINAL INFECTION [None]
  - GASTROINTESTINAL NEOPLASM [None]
  - GASTROINTESTINAL PERFORATION [None]
  - HAEMATOCRIT DECREASED [None]
  - HAEMOGLOBIN DECREASED [None]
  - INTESTINAL ISCHAEMIA [None]
  - LEUKOCYTOSIS [None]
  - NAUSEA [None]
  - PLATELET COUNT INCREASED [None]
  - PYREXIA [None]
  - SMALL INTESTINAL OBSTRUCTION [None]
  - VOMITING [None]
